FAERS Safety Report 10441718 (Version 2)
Quarter: 2014Q4

REPORT INFORMATION
  Report Type: Spontaneous
  Country: JP (occurrence: JP)
  Receive Date: 20140909
  Receipt Date: 20141231
  Transmission Date: 20150528
  Serious: Yes (Life-Threatening, Other)
  Sender: FDA-Public Use
  Company Number: JP-PFIZER INC-2014246715

PATIENT
  Age: 54 Year
  Sex: Male
  Weight: 53 kg

DRUGS (26)
  1. PENICILLIN G POTASSIUM. [Suspect]
     Active Substance: PENICILLIN G POTASSIUM
     Indication: INFECTION
     Dosage: 4 MILLION IU, 6 TIMES DAILY
     Route: 042
     Dates: start: 20120904, end: 20120912
  2. VANCOMYCIN [Suspect]
     Active Substance: VANCOMYCIN
     Indication: EVIDENCE BASED TREATMENT
  3. DORMICUM FOR INJECTION [Suspect]
     Active Substance: MIDAZOLAM\MIDAZOLAM HYDROCHLORIDE
     Dosage: UNK, UNKNOWN FREQUENCY
     Route: 042
  4. MAGNESIUM SULFATE. [Suspect]
     Active Substance: MAGNESIUM SULFATE
     Indication: MUSCLE TIGHTNESS
  5. RAVONAL [Suspect]
     Active Substance: THIOPENTAL
     Indication: SEDATION
  6. CEFAMEZIN ^FUJISAWA^ [Suspect]
     Active Substance: CEFAZOLIN
     Indication: INFECTION
     Dosage: 1 G, 3X/DAY
     Route: 042
     Dates: start: 20120913, end: 20120913
  7. DEXMEDETOMIDINE [Suspect]
     Active Substance: DEXMEDETOMIDINE
     Indication: ANAESTHESIA PROCEDURE
     Dosage: UNK
     Route: 042
  8. RAVONAL [Suspect]
     Active Substance: THIOPENTAL
     Indication: MUSCLE SPASMS
     Dosage: 200-250 MG/H, ONCE DAILY
     Route: 042
     Dates: start: 20120914, end: 20120922
  9. DIPRIVAN [Suspect]
     Active Substance: PROPOFOL
     Indication: ANAESTHESIA PROCEDURE
  10. DANTRIUM [Suspect]
     Active Substance: DANTROLENE SODIUM
     Indication: MUSCLE SPASMS
     Dosage: 12.5 MG, 2X/DAY
     Route: 042
     Dates: start: 20120922, end: 20120923
  11. FENTANYL. [Suspect]
     Active Substance: FENTANYL
     Indication: MUSCLE SPASMS
     Dosage: 10-50 MCG, UNKNOWN FREQUENCY
     Dates: start: 20120904, end: 20121115
  12. FENTANYL. [Suspect]
     Active Substance: FENTANYL
     Indication: ANALGESIC THERAPY
  13. DORMICUM FOR INJECTION [Suspect]
     Active Substance: MIDAZOLAM\MIDAZOLAM HYDROCHLORIDE
     Indication: SEDATION
     Dosage: UNK, UNKNOWN FREQUENCY
     Route: 042
     Dates: start: 20120923
  14. DANTRIUM [Suspect]
     Active Substance: DANTROLENE SODIUM
     Indication: MUSCLE TWITCHING
  15. SULBACILLIN [Suspect]
     Active Substance: AMPICILLIN SODIUM\SULBACTAM SODIUM
     Indication: INFECTION
     Dosage: 1.5-3 G, 2-3X/DAY
     Route: 042
     Dates: start: 20120914, end: 20120919
  16. DEXMEDETOMIDINE [Suspect]
     Active Substance: DEXMEDETOMIDINE
     Indication: SEDATION
  17. DIPRIVAN [Suspect]
     Active Substance: PROPOFOL
     Indication: MUSCLE SPASMS
     Dosage: 5-10 MG/H, ONCE DAILY
     Route: 042
     Dates: start: 20120908, end: 20120914
  18. DORMICUM FOR INJECTION [Suspect]
     Active Substance: MIDAZOLAM\MIDAZOLAM HYDROCHLORIDE
     Indication: MUSCLE SPASMS
     Dosage: 3-20 MG/H, ONCE DAILY
     Route: 042
     Dates: start: 20120904, end: 20120913
  19. VANCOMYCIN [Suspect]
     Active Substance: VANCOMYCIN
     Indication: INFECTION
     Dosage: 1 G, 1X/DAY
     Route: 042
     Dates: start: 20120922, end: 20120925
  20. MAGNESIUM SULFATE. [Suspect]
     Active Substance: MAGNESIUM SULFATE
     Indication: MUSCLE TWITCHING
  21. DEXMEDETOMIDINE [Suspect]
     Active Substance: DEXMEDETOMIDINE
     Indication: MUSCLE SPASMS
     Dosage: 20-40 MCG, ONCE DAILY
     Route: 042
     Dates: start: 20120909, end: 20120913
  22. DIPRIVAN [Suspect]
     Active Substance: PROPOFOL
     Indication: SEDATION
  23. DANTRIUM [Suspect]
     Active Substance: DANTROLENE SODIUM
     Indication: MUSCLE TIGHTNESS
  24. MAGNESIUM SULFATE. [Suspect]
     Active Substance: MAGNESIUM SULFATE
     Indication: MUSCLE SPASMS
     Dosage: UNK, ONCE DAILY
     Route: 042
     Dates: start: 20120908, end: 20121113
  25. FENTANYL. [Suspect]
     Active Substance: FENTANYL
     Indication: ANAESTHESIA PROCEDURE
  26. RAVONAL [Suspect]
     Active Substance: THIOPENTAL
     Indication: ANAESTHESIA PROCEDURE

REACTIONS (4)
  - Drug eruption [Recovering/Resolving]
  - Multi-organ failure [Unknown]
  - Histiocytosis haematophagic [Recovered/Resolved]
  - Off label use [Unknown]
